FAERS Safety Report 22087974 (Version 1)
Quarter: 2023Q1

REPORT INFORMATION
  Report Type: Other
  Country: US (occurrence: None)
  Receive Date: 20230313
  Receipt Date: 20230313
  Transmission Date: 20230417
  Serious: Yes (Other)
  Sender: FDA-Public Use
  Company Number: US-ROCHE-3298530

PATIENT
  Age: 52 Year
  Sex: Female
  Weight: 81.720 kg

DRUGS (5)
  1. OCREVUS [Suspect]
     Active Substance: OCRELIZUMAB
     Indication: Primary progressive multiple sclerosis
     Dosage: DATE OF TREATMENT 29-DEC-2022., 12/DEC/2022, 12/JUN/2023, 12/DEC/2023
     Route: 042
  2. DITROPAN XL [Concomitant]
     Active Substance: OXYBUTYNIN CHLORIDE
  3. TYLENOL [Concomitant]
     Active Substance: ACETAMINOPHEN
  4. PREDNISOLONE [Concomitant]
     Active Substance: PREDNISOLONE
  5. BENADRYL [Concomitant]
     Active Substance: DIPHENHYDRAMINE HYDROCHLORIDE

REACTIONS (2)
  - COVID-19 [Recovered/Resolved]
  - Urinary tract infection [Unknown]

NARRATIVE: CASE EVENT DATE: 20221001
